FAERS Safety Report 24919513 (Version 1)
Quarter: 2025Q1

REPORT INFORMATION
  Report Type: Report from Study
  Country: US (occurrence: US)
  Receive Date: 20250204
  Receipt Date: 20250204
  Transmission Date: 20250409
  Serious: No
  Sender: EXELIXIS
  Company Number: US-EXELIXIS-CABO-23071389

PATIENT
  Sex: Female

DRUGS (1)
  1. CABOMETYX [Suspect]
     Active Substance: CABOZANTINIB S-MALATE
     Indication: Renal cancer
     Dosage: 40 MG, QD
     Route: 048

REACTIONS (9)
  - Dysphagia [Recovering/Resolving]
  - Ear congestion [Recovering/Resolving]
  - Rhinorrhoea [Recovering/Resolving]
  - Aphthous ulcer [Recovering/Resolving]
  - Skin ulcer [Recovering/Resolving]
  - Diarrhoea [Recovering/Resolving]
  - Constipation [Recovering/Resolving]
  - Stomatitis [Recovering/Resolving]
  - Decreased appetite [Recovering/Resolving]
